FAERS Safety Report 4958705-X (Version None)
Quarter: 2006Q1

REPORT INFORMATION
  Report Type: 
  Country: None (occurrence: None)
  Receive Date: 20060330
  Receipt Date: 20051215
  Transmission Date: 20060701
  Serious: Yes (Hospitalization)
  Sender: FDA-Public Use
  Company Number: US-MERCK-0512USA02542

PATIENT
  Age: 61 Year
  Sex: Male
  Weight: 92 kg

DRUGS (2)
  1. VIOXX [Suspect]
     Indication: MENISCUS LESION
     Route: 048
     Dates: start: 19990501, end: 20040930
  2. VIOXX [Suspect]
     Indication: OSTEOARTHRITIS
     Route: 048
     Dates: start: 19990501, end: 20040930

REACTIONS (16)
  - ABDOMINAL DISCOMFORT [None]
  - ABDOMINAL PAIN UPPER [None]
  - ANGINA PECTORIS [None]
  - ATRIAL SEPTAL DEFECT [None]
  - CARDIAC FAILURE CONGESTIVE [None]
  - CARDIOMEGALY [None]
  - CORONARY ARTERY DISEASE [None]
  - DEPRESSION [None]
  - FATIGUE [None]
  - MYOCARDIAL INFARCTION [None]
  - NOCTURIA [None]
  - OEDEMA [None]
  - OVERDOSE [None]
  - PLEURAL EFFUSION [None]
  - PNEUMOTHORAX [None]
  - PROSTATIC DISORDER [None]
